FAERS Safety Report 18025884 (Version 1)
Quarter: 2020Q3

REPORT INFORMATION
  Report Type: Spontaneous
  Country: FR (occurrence: FR)
  Receive Date: 20200715
  Receipt Date: 20200715
  Transmission Date: 20201103
  Serious: Yes (Life-Threatening)
  Sender: FDA-Public Use
  Company Number: FR-MYLANLABS-2020M1062773

PATIENT
  Age: 59 Year
  Sex: Female
  Weight: 64 kg

DRUGS (3)
  1. HUMIRA [Suspect]
     Active Substance: ADALIMUMAB
     Indication: RHEUMATOID ARTHRITIS
     Dosage: UNK
  2. NORDIMET                           /00113801/ [Suspect]
     Active Substance: METHOTREXATE
     Indication: RHEUMATOID ARTHRITIS
     Dosage: UNK
  3. IBUPROFEN. [Suspect]
     Active Substance: IBUPROFEN
     Indication: PYREXIA
     Dosage: UNK
     Route: 048
     Dates: start: 20191105, end: 20191117

REACTIONS (4)
  - Thrombophlebitis septic [Recovered/Resolved with Sequelae]
  - Coma [Recovered/Resolved]
  - Acute sinusitis [Recovered/Resolved with Sequelae]
  - Meningitis bacterial [Recovered/Resolved with Sequelae]

NARRATIVE: CASE EVENT DATE: 20191105
